FAERS Safety Report 21510538 (Version 1)
Quarter: 2022Q4

REPORT INFORMATION
  Report Type: Report from Study
  Country: CA (occurrence: CA)
  Receive Date: 20221026
  Receipt Date: 20221026
  Transmission Date: 20230113
  Serious: Yes (Hospitalization, Other)
  Sender: FDA-Public Use
  Company Number: CA-VER-202200550

PATIENT
  Age: 91 Year
  Sex: Male

DRUGS (1)
  1. TRIPTORELIN PAMOATE [Suspect]
     Active Substance: TRIPTORELIN PAMOATE
     Dosage: 1) 09-SEP-2021 - 09-SEP-2021???2) 08-DEC-2021 - 08-DEC-2021 (1 DAYS)?3) 09-MAR-2022 - 09-MAR-2022 (1
     Route: 030

REACTIONS (2)
  - Cerebral haemorrhage [Unknown]
  - Fall [Unknown]
